FAERS Safety Report 10657808 (Version 1)
Quarter: 2014Q4

REPORT INFORMATION
  Report Type: Spontaneous
  Country: US (occurrence: None)
  Receive Date: 20141216
  Receipt Date: 20141216
  Transmission Date: 20150529
  Serious: No
  Sender: FDA-Public Use
  Company Number: None

PATIENT
  Age: 61 Year
  Sex: Female

DRUGS (1)
  1. SIMPONI [Suspect]
     Active Substance: GOLIMUMAB
     Indication: COLITIS ULCERATIVE
     Dosage: 100 MG EVERY 4 WEEKS SC
     Route: 058
     Dates: start: 20140704

REACTIONS (4)
  - Condition aggravated [None]
  - Stress [None]
  - Rash [None]
  - Alopecia [None]

NARRATIVE: CASE EVENT DATE: 201407
